FAERS Safety Report 9978141 (Version 2)
Quarter: 2014Q2

REPORT INFORMATION
  Report Type: Spontaneous
  Country: US (occurrence: US)
  Receive Date: 20140306
  Receipt Date: 20140416
  Transmission Date: 20141212
  Serious: No
  Sender: FDA-Public Use
  Company Number: US-PFIZER INC-2014064903

PATIENT
  Age: 40 Year
  Sex: Female
  Weight: 58.96 kg

DRUGS (6)
  1. LYRICA [Suspect]
     Indication: FIBROMYALGIA
     Dosage: 75 MG, 2X/DAY
     Route: 048
     Dates: start: 2013
  2. LYRICA [Suspect]
     Dosage: 75 MG, 1X/DAY
     Route: 048
  3. LYRICA [Suspect]
     Dosage: 150 MG, 2X/DAY
     Route: 048
  4. LYRICA [Suspect]
     Dosage: 150 MG, 1X/DAY
     Route: 048
  5. VALIUM [Concomitant]
     Dosage: 2 MG, AS NEEDED
  6. NORCO [Concomitant]
     Dosage: 10/325 MG AS NEEDED

REACTIONS (5)
  - Drug intolerance [Unknown]
  - Pain [Unknown]
  - Dysarthria [Unknown]
  - Vision blurred [Unknown]
  - Dizziness [Unknown]
